FAERS Safety Report 7329459-7 (Version None)
Quarter: 2011Q1

REPORT INFORMATION
  Report Type: 
  Country: None (occurrence: None)
  Receive Date: 20110303
  Receipt Date: 20110301
  Transmission Date: 20110831
  Serious: Yes (Hospitalization, Other)
  Sender: FDA-Public Use
  Company Number: US-ABBOTT-11P-163-0708316-00

PATIENT
  Sex: Male
  Weight: 81.72 kg

DRUGS (1)
  1. HUMIRA [Suspect]
     Indication: PSORIASIS
     Route: 058
     Dates: start: 20080101

REACTIONS (10)
  - CHILLS [None]
  - HEPATIC ENZYME INCREASED [None]
  - SHIGELLA INFECTION [None]
  - RED BLOOD CELL COUNT DECREASED [None]
  - WHITE BLOOD CELL COUNT INCREASED [None]
  - DIARRHOEA HAEMORRHAGIC [None]
  - PYREXIA [None]
  - DIARRHOEA [None]
  - BLOOD POTASSIUM DECREASED [None]
  - BACTERIAL TEST POSITIVE [None]
